FAERS Safety Report 8003840-5 (Version None)
Quarter: 2011Q4

REPORT INFORMATION
  Report Type: 
  Country: None (occurrence: None)
  Receive Date: 20111222
  Receipt Date: 20111221
  Transmission Date: 20120403
  Serious: Yes (Death)
  Sender: FDA-Public Use
  Company Number: US-ELI_LILLY_AND_COMPANY-US201112006070

PATIENT
  Sex: Male

DRUGS (4)
  1. CISPLATIN [Concomitant]
  2. ALOXI [Concomitant]
  3. GEMZAR [Suspect]
     Indication: BILE DUCT CANCER
     Dosage: 2000 MG, ON DAY 1 AND 8 OF EVERY21DAYS
     Dates: start: 20111102
  4. NEULASTA [Concomitant]

REACTIONS (1)
  - SUDDEN DEATH [None]
